FAERS Safety Report 19010117 (Version 1)
Quarter: 2021Q1

REPORT INFORMATION
  Report Type: Report from Study
  Country: None (occurrence: US)
  Receive Date: 20210315
  Receipt Date: 20210315
  Transmission Date: 20210420
  Serious: Yes (Hospitalization, Other)
  Sender: FDA-Public Use
  Company Number: US-ABBVIE-20K-163-3272381-00

PATIENT
  Age: 72 Year
  Sex: Female
  Weight: 60.38 kg

DRUGS (5)
  1. HUMIRA [Suspect]
     Active Substance: ADALIMUMAB
     Indication: PSORIATIC ARTHROPATHY
     Route: 058
     Dates: start: 2018, end: 202011
  2. CEFALEXIN [Concomitant]
     Active Substance: CEPHALEXIN
     Indication: BLADDER DISORDER
  3. HUMIRA [Suspect]
     Active Substance: ADALIMUMAB
     Route: 058
     Dates: start: 202012
  4. METHOTREXATE. [Concomitant]
     Active Substance: METHOTREXATE
     Indication: PSORIATIC ARTHROPATHY
  5. LISINOPRIL. [Concomitant]
     Active Substance: LISINOPRIL
     Indication: HYPERTENSION

REACTIONS (10)
  - Joint effusion [Recovered/Resolved]
  - Pseudomonal sepsis [Recovered/Resolved]
  - Pseudomonas infection [Recovered/Resolved]
  - Psoriatic arthropathy [Not Recovered/Not Resolved]
  - Infection [Recovered/Resolved]
  - Urinary tract infection [Recovered/Resolved]
  - Psoriatic arthropathy [Recovered/Resolved]
  - Urinary tract infection [Recovered/Resolved]
  - White blood cell count decreased [Recovering/Resolving]
  - Psoriatic arthropathy [Recovered/Resolved]

NARRATIVE: CASE EVENT DATE: 201911
